FAERS Safety Report 5581658-0 (Version None)
Quarter: 2008Q1

REPORT INFORMATION
  Report Type: 
  Country: None (occurrence: None)
  Receive Date: 20080104
  Receipt Date: 20071221
  Transmission Date: 20080703
  Serious: Yes (Death, Life-Threatening, Hospitalization)
  Sender: FDA-Public Use
  Company Number: CA-AMGEN-US251217

PATIENT
  Sex: Male

DRUGS (15)
  1. PANITUMUMAB [Suspect]
     Indication: SQUAMOUS CELL CARCINOMA
     Route: 042
     Dates: start: 20071023, end: 20071023
  2. CISPLATIN [Concomitant]
     Dates: start: 20071023, end: 20071023
  3. FLUOROURACIL [Concomitant]
     Dates: start: 20071023, end: 20071027
  4. FENTANYL [Concomitant]
  5. TYLENOL W/ CODEINE NO. 3 [Concomitant]
  6. HYDROMORPHONE HCL [Concomitant]
  7. HYDROCORTISONE [Concomitant]
  8. TRANEXAMIC ACID [Concomitant]
  9. COLACE [Concomitant]
  10. SENOKOT [Concomitant]
  11. FUROSEMIDE [Concomitant]
  12. MAGNESIUM SULFATE [Concomitant]
  13. DECADRON [Concomitant]
  14. GRANISETRON [Concomitant]
  15. RANITIDINE HCL [Concomitant]

REACTIONS (5)
  - DEHYDRATION [None]
  - DIARRHOEA [None]
  - NEUTROPENIA [None]
  - RENAL FAILURE [None]
  - SEPSIS [None]
